FAERS Safety Report 24918527 (Version 2)
Quarter: 2025Q1

REPORT INFORMATION
  Report Type: Spontaneous
  Country: JP (occurrence: JP)
  Receive Date: 20250203
  Receipt Date: 20250323
  Transmission Date: 20250409
  Serious: Yes (Hospitalization)
  Sender: GLAXOSMITHKLINE
  Company Number: JP-GSKNCCC-Case-02205633_AE-93322

PATIENT

DRUGS (1)
  1. ATOVAQUONE [Suspect]
     Active Substance: ATOVAQUONE
     Dosage: 5 ML, 1D

REACTIONS (3)
  - Hospitalisation [Unknown]
  - Prescribed underdose [Unknown]
  - Off label use [Unknown]
